FAERS Safety Report 9095577 (Version 1)
Quarter: 2013Q1

REPORT INFORMATION
  Report Type: Spontaneous
  Country: US (occurrence: US)
  Receive Date: 20130220
  Receipt Date: 20130220
  Transmission Date: 20140127
  Serious: Yes (Other)
  Sender: FDA-Public Use
  Company Number: PHEH2013US003941

PATIENT
  Sex: Female

DRUGS (3)
  1. VIVELLE DOT [Suspect]
     Dosage: 0.1 MG, UNK
     Route: 062
  2. PREDNISONE [Concomitant]
  3. PERCOCET [Concomitant]

REACTIONS (1)
  - Osteoporosis [Unknown]
